FAERS Safety Report 24000512 (Version 1)
Quarter: 2024Q2

REPORT INFORMATION
  Report Type: Spontaneous
  Country: US (occurrence: US)
  Receive Date: 20240621
  Receipt Date: 20240621
  Transmission Date: 20240715
  Serious: Yes (Other)
  Sender: FDA-Public Use
  Company Number: US-FreseniusKabi-FK202409476

PATIENT
  Age: 73 Year
  Sex: Male

DRUGS (3)
  1. AMIKACIN [Suspect]
     Active Substance: AMIKACIN
     Indication: Nocardiosis
     Dosage: ROUTE OF ADMIN: INTRAVENOUS
  2. AMIKACIN [Suspect]
     Active Substance: AMIKACIN
     Indication: Nocardiosis
  3. LINEZOLID [Concomitant]
     Active Substance: LINEZOLID
     Indication: Nocardiosis

REACTIONS (2)
  - Acute kidney injury [Unknown]
  - Electrocardiogram QT prolonged [Unknown]
